FAERS Safety Report 7892669 (Version 2)
Quarter: 2012Q4

REPORT INFORMATION
  Report Type: 
  Country: DK (occurrence: DK)
  Receive Date: 20110411
  Receipt Date: 20121008
  Transmission Date: 20130627
  Serious: Yes (Death)
  Sender: FDA-Public Use
  Company Number: DK-RANBAXY-2011R1-43573

PATIENT
  Age: 11 Day

DRUGS (1)
  1. FLUOXETINE [Suspect]
     Indication: MATERNAL EXPOSURE TIMING UNSPECIFIED
     Dosage: UNK
     Route: 064

REACTIONS (6)
  - Foetal exposure during pregnancy [Fatal]
  - Drug withdrawal syndrome neonatal [Fatal]
  - Cerebral disorder [Fatal]
  - Circulatory failure neonatal [Fatal]
  - Premature baby [Fatal]
  - Neonatal anoxia [Fatal]
